FAERS Safety Report 24387953 (Version 2)
Quarter: 2024Q4

REPORT INFORMATION
  Report Type: Spontaneous
  Country: CN (occurrence: CN)
  Receive Date: 20241002
  Receipt Date: 20241203
  Transmission Date: 20250114
  Serious: Yes (Death, Life-Threatening, Hospitalization, Other)
  Sender: PFIZER
  Company Number: CN-PFIZER INC-PV202400125680

PATIENT
  Age: 21 Year
  Sex: Female
  Weight: 42 kg

DRUGS (2)
  1. TIGECYCLINE [Suspect]
     Active Substance: TIGECYCLINE
     Dosage: 50 MG, 2X/DAY (EVERY 12 HOURS)
     Route: 041
     Dates: start: 20240911, end: 20240914
  2. DEXTROSE [Concomitant]
     Active Substance: DEXTROSE MONOHYDRATE
     Indication: Vehicle solution use
     Dosage: 100 ML, 2X/DAY (EVERY 12 HOURS)
     Route: 041
     Dates: start: 20240911, end: 20240914

REACTIONS (3)
  - Septic shock [Fatal]
  - Transaminases increased [Not Recovered/Not Resolved]
  - Hepatic failure [Unknown]

NARRATIVE: CASE EVENT DATE: 20240914
